FAERS Safety Report 7111199-0 (Version None)
Quarter: 2010Q4

REPORT INFORMATION
  Report Type: 
  Country: None (occurrence: None)
  Receive Date: 20101118
  Receipt Date: 20101105
  Transmission Date: 20110411
  Serious: Yes (Hospitalization)
  Sender: FDA-Public Use
  Company Number: US-MYLANLABS-2010S1020747

PATIENT
  Age: 40 Year
  Sex: Female

DRUGS (3)
  1. LAMOTRIGINE [Suspect]
     Indication: INTENTIONAL OVERDOSE
     Dosage: INGESTED 30 TABLETS OF LAMOTRIGINE (200MG EACH)
     Route: 048
  2. FAMOTIDINE [Concomitant]
     Dosage: PRESCRIBED 30 TABLETS; AMOUNT TAKEN UNCLEAR
     Route: 065
  3. DEXAMETHASONE [Concomitant]
     Dosage: PRESCRIBED 21 TABLETS; AMOUNT TAKEN UNCLEAR

REACTIONS (2)
  - ENCEPHALOPATHY [None]
  - INTENTIONAL OVERDOSE [None]
